FAERS Safety Report 9060674 (Version 2)
Quarter: 2013Q1

REPORT INFORMATION
  Report Type: Spontaneous
  Country: FR (occurrence: FR)
  Receive Date: 20130204
  Receipt Date: 20130324
  Transmission Date: 20140127
  Serious: Yes (Hospitalization)
  Sender: FDA-Public Use
  Company Number: FR-ROCHE-1185024

PATIENT
  Age: 79 Year
  Sex: Female

DRUGS (5)
  1. ZELBORAF [Suspect]
     Indication: METASTATIC MALIGNANT MELANOMA
     Route: 048
     Dates: start: 20121222
  2. ZELBORAF [Suspect]
     Dosage: REDUCED TO HALF
     Route: 048
     Dates: start: 20121229, end: 20121231
  3. ZELBORAF [Suspect]
     Route: 048
     Dates: start: 20130116
  4. ZELBORAF [Suspect]
     Route: 048
     Dates: start: 20130119
  5. ZELBORAF [Suspect]
     Route: 048
     Dates: start: 201301

REACTIONS (3)
  - Dermatitis exfoliative [Recovered/Resolved]
  - Pruritus [Recovered/Resolved]
  - Arthralgia [Not Recovered/Not Resolved]
